FAERS Safety Report 10606804 (Version 1)
Quarter: 2014Q4

REPORT INFORMATION
  Report Type: Spontaneous
  Country: US (occurrence: None)
  Receive Date: 20141124
  Receipt Date: 20141124
  Transmission Date: 20150529
  Serious: Yes (Death)
  Sender: FDA-Public Use
  Company Number: None

PATIENT
  Age: 68 Year
  Sex: Female

DRUGS (1)
  1. BACTRIM [Suspect]
     Active Substance: SULFAMETHOXAZOLE\TRIMETHOPRIM
     Dates: start: 20130712, end: 20130720

REACTIONS (9)
  - Generalised oedema [None]
  - Cardiogenic shock [None]
  - Acute kidney injury [None]
  - Drug-induced liver injury [None]
  - Hepatic steatosis [None]
  - Dialysis [None]
  - Multi-organ failure [None]
  - Hepatitis cholestatic [None]
  - Coronary artery disease [None]

NARRATIVE: CASE EVENT DATE: 20130717
